FAERS Safety Report 13784884 (Version 2)
Quarter: 2017Q4

REPORT INFORMATION
  Report Type: Spontaneous
  Country: US (occurrence: US)
  Receive Date: 20170724
  Receipt Date: 20171024
  Transmission Date: 20180320
  Serious: No
  Sender: FDA-Public Use
  Company Number: US-IMPAX LABORATORIES, INC-2017-IPXL-01906

PATIENT
  Age: 52 Year
  Sex: Male
  Weight: 88 kg

DRUGS (7)
  1. RYTARY [Suspect]
     Active Substance: CARBIDOPA\LEVODOPA
     Dosage: 36.25/145MG 4 CAPSULES 3 TIMES DAILY
     Route: 048
     Dates: start: 201706, end: 201706
  2. SINEMET [Suspect]
     Active Substance: CARBIDOPA\LEVODOPA
     Indication: PARKINSON^S DISEASE
     Dosage: UNK
     Route: 065
  3. SELEGILINE [Concomitant]
     Active Substance: SELEGILINE
     Indication: PARKINSON^S DISEASE
     Dosage: UNK
     Route: 065
  4. PRAMIPEXOLE. [Concomitant]
     Active Substance: PRAMIPEXOLE
     Indication: PARKINSON^S DISEASE
     Dosage: UNK
     Route: 065
  5. RYTARY [Suspect]
     Active Substance: CARBIDOPA\LEVODOPA
     Dosage: 48.75/195MG, 4 CAPSULES 3 TIMES DAILY
     Route: 048
     Dates: start: 201706
  6. RYTARY [Suspect]
     Active Substance: CARBIDOPA\LEVODOPA
     Indication: PARKINSON^S DISEASE
     Dosage: 48.75/195MG, 4 CAPSULES 3 TIMES DAILY
     Route: 048
     Dates: start: 201704
  7. RYTARY [Suspect]
     Active Substance: CARBIDOPA\LEVODOPA
     Dosage: 36.25/145MG 2 CAPSULES 4 TIMES DAILY
     Route: 048
     Dates: start: 2017

REACTIONS (4)
  - Intentional product use issue [Unknown]
  - Dyskinesia [Recovering/Resolving]
  - Therapeutic response shortened [Recovered/Resolved]
  - Drug ineffective [Unknown]
